FAERS Safety Report 15788957 (Version 2)
Quarter: 2019Q1

REPORT INFORMATION
  Report Type: Spontaneous
  Country: US (occurrence: US)
  Receive Date: 20190104
  Receipt Date: 20190114
  Transmission Date: 20190417
  Serious: No
  Sender: FDA-Public Use
  Company Number: US-TEVA-2018-US-986747

PATIENT
  Age: 82 Year
  Sex: Male

DRUGS (1)
  1. DIFLUNISAL TABLET [Suspect]
     Active Substance: DIFLUNISAL
     Indication: CARDIAC AMYLOIDOSIS
     Dosage: TEN YEAR AGO
     Route: 065
     Dates: start: 2008

REACTIONS (3)
  - Product prescribing error [Unknown]
  - Ecchymosis [Unknown]
  - Wrong technique in product usage process [Unknown]

NARRATIVE: CASE EVENT DATE: 2008
